FAERS Safety Report 7815615-8 (Version None)
Quarter: 2011Q4

REPORT INFORMATION
  Report Type: 
  Country: None (occurrence: None)
  Receive Date: 20111014
  Receipt Date: 20111010
  Transmission Date: 20120403
  Serious: Yes (Other)
  Sender: FDA-Public Use
  Company Number: DE-ABBOTT-11P-062-0862513-00

PATIENT
  Age: 70 Year
  Sex: Male

DRUGS (2)
  1. REMIFENTANIL [Suspect]
     Indication: ANAESTHESIA
     Route: 042
  2. PROPOFOL [Concomitant]

REACTIONS (3)
  - OVERDOSE [None]
  - DRUG ADMINISTRATION ERROR [None]
  - EPILEPSY [None]
